FAERS Safety Report 9562431 (Version 1)
Quarter: 2013Q3

REPORT INFORMATION
  Report Type: Spontaneous
  Country: US (occurrence: US)
  Receive Date: 20130927
  Receipt Date: 20130927
  Transmission Date: 20140515
  Serious: Yes (Hospitalization)
  Sender: FDA-Public Use
  Company Number: US-GLAXOSMITHKLINE-A1042556A

PATIENT
  Sex: Female

DRUGS (1)
  1. COREG [Suspect]
     Indication: CARDIAC FAILURE CONGESTIVE
     Dosage: 50MG PER DAY
     Route: 048

REACTIONS (2)
  - Hypotension [Unknown]
  - Pleural effusion [Unknown]
